FAERS Safety Report 8498098 (Version 7)
Quarter: 2013Q3

REPORT INFORMATION
  Report Type: Spontaneous
  Country: US (occurrence: US)
  Receive Date: 20120406
  Receipt Date: 20130906
  Transmission Date: 20140515
  Serious: Yes (Other)
  Sender: FDA-Public Use
  Company Number: US-GLAXOSMITHKLINE-A0972496A

PATIENT
  Age: 13 Year
  Sex: Female
  Weight: 56 kg

DRUGS (4)
  1. FLOLAN [Suspect]
     Indication: PULMONARY ARTERIAL HYPERTENSION
     Dosage: 36NGKM SEE DOSAGE TEXT
     Route: 042
     Dates: start: 20101207
  2. FLOLAN DILUENT [Suspect]
     Indication: PRODUCT USED FOR UNKNOWN INDICATION
     Route: 042
  3. SILDENAFIL [Concomitant]
     Indication: PULMONARY HYPERTENSION
     Dosage: 60MG THREE TIMES PER DAY
     Route: 048
  4. BOSENTAN [Concomitant]
     Indication: PULMONARY HYPERTENSION
     Dosage: 125MG TWICE PER DAY
     Route: 048

REACTIONS (8)
  - Presyncope [Recovered/Resolved]
  - Medical device complication [Unknown]
  - Dyspnoea [Unknown]
  - Dizziness [Unknown]
  - Treatment noncompliance [Unknown]
  - Medical device complication [Unknown]
  - Device leakage [Recovered/Resolved]
  - Injury [Recovered/Resolved]
